FAERS Safety Report 10108895 (Version 1)
Quarter: 2014Q2

REPORT INFORMATION
  Report Type: Spontaneous
  Country: US (occurrence: US)
  Receive Date: 20140425
  Receipt Date: 20140425
  Transmission Date: 20141212
  Serious: No
  Sender: FDA-Public Use
  Company Number: 2014SP001297

PATIENT
  Age: 42 Year
  Sex: Female

DRUGS (2)
  1. ENBREL [Suspect]
     Dosage: 50 MG, QWK
     Route: 058
     Dates: start: 201111, end: 201212
  2. METHOTREXATE [Suspect]
     Dosage: UNK
     Route: 065
     Dates: end: 201212

REACTIONS (2)
  - Hepatic enzyme increased [Unknown]
  - Injection site pain [Unknown]
